FAERS Safety Report 7323691-4 (Version None)
Quarter: 2011Q1

REPORT INFORMATION
  Report Type: 
  Country: None (occurrence: None)
  Receive Date: 20110301
  Receipt Date: 20100709
  Transmission Date: 20110831
  Serious: Yes (Hospitalization, Other)
  Sender: FDA-Public Use
  Company Number: US-BAYER-201024763NA

PATIENT
  Sex: Female
  Weight: 56.818 kg

DRUGS (7)
  1. PERCOCET [Concomitant]
     Indication: BACK PAIN
  2. ZOLOFT [Concomitant]
     Dates: start: 20020101
  3. YAZ [Suspect]
     Indication: CONTRACEPTION
     Route: 048
     Dates: start: 20080304, end: 20080516
  4. NAPROXEN [Concomitant]
     Indication: BACK PAIN
  5. METHOCARBAMOL [Concomitant]
  6. YASMIN [Suspect]
     Indication: CONTRACEPTION
  7. ALEVE [Concomitant]

REACTIONS (5)
  - MUSCULOSKELETAL CHEST PAIN [None]
  - PULMONARY EMBOLISM [None]
  - BACK PAIN [None]
  - DYSPNOEA [None]
  - DEEP VEIN THROMBOSIS [None]
